FAERS Safety Report 8280858-9 (Version None)
Quarter: 2012Q2

REPORT INFORMATION
  Report Type: 
  Country: None (occurrence: None)
  Receive Date: 20120412
  Receipt Date: 20120403
  Transmission Date: 20120825
  Serious: Yes (Other)
  Sender: FDA-Public Use
  Company Number: US-ABBOTT-12P-163-0903876-00

PATIENT
  Sex: Male

DRUGS (2)
  1. HYDROCODONE BITARTRATE [Suspect]
     Indication: ANALGESIC THERAPY
  2. BUTRANS [Suspect]
     Indication: ANALGESIC THERAPY

REACTIONS (3)
  - MULTIPLE DRUG OVERDOSE [None]
  - DRUG DEPENDENCE [None]
  - DRUG ABUSE [None]
